FAERS Safety Report 14907475 (Version 1)
Quarter: 2018Q2

REPORT INFORMATION
  Report Type: Spontaneous
  Country: US (occurrence: US)
  Receive Date: 20180517
  Receipt Date: 20180517
  Transmission Date: 20180711
  Serious: Yes (Life-Threatening, Hospitalization, Other)
  Sender: FDA-Public Use
  Company Number: US-ACCORD-067109

PATIENT
  Age: 12 Year
  Sex: Male

DRUGS (6)
  1. ONDANSETRON [Suspect]
     Active Substance: ONDANSETRON
     Indication: PRODUCT USED FOR UNKNOWN INDICATION
     Route: 042
  2. CYPROHEPTADINE. [Suspect]
     Active Substance: CYPROHEPTADINE
     Indication: APPETITE DISORDER
     Dosage: 12 MG DAILY FOR 6 MONTHS
  3. CLONIDINE. [Concomitant]
     Active Substance: CLONIDINE
     Dosage: 0.2 MG TWICE A DAY FOR 5 YEARS
  4. ARIPIPRAZOLE. [Suspect]
     Active Substance: ARIPIPRAZOLE
     Indication: PRODUCT USED FOR UNKNOWN INDICATION
     Dosage: 2.5 MG DAILY
  5. FLUOXETINE [Suspect]
     Active Substance: FLUOXETINE HYDROCHLORIDE
     Indication: PRODUCT USED FOR UNKNOWN INDICATION
     Dosage: 20 MG DAILY FOR 2 YEARS
  6. DEXAMFETAMINE [Concomitant]
     Active Substance: DEXTROAMPHETAMINE
     Dosage: 30 MG DAILY FOR 5 YEARS

REACTIONS (2)
  - Neuroleptic malignant syndrome [Recovering/Resolving]
  - Serotonin syndrome [Recovering/Resolving]
